FAERS Safety Report 10084460 (Version 2)
Quarter: 2016Q1

REPORT INFORMATION
  Report Type: Spontaneous
  Country: US (occurrence: US)
  Receive Date: 20140417
  Receipt Date: 20160112
  Transmission Date: 20160525
  Serious: Yes (Hospitalization)
  Sender: FDA-Public Use
  Company Number: US-SA-2014SA044490

PATIENT
  Age: 57 Year

DRUGS (3)
  1. PLAVIX [Suspect]
     Active Substance: CLOPIDOGREL BISULFATE
     Indication: STENT PLACEMENT
     Route: 065
     Dates: start: 201102, end: 201204
  2. ASPIRIN. [Concomitant]
     Active Substance: ASPIRIN
     Dates: start: 201102, end: 201204
  3. PLAVIX [Suspect]
     Active Substance: CLOPIDOGREL BISULFATE
     Indication: ACUTE CORONARY SYNDROME
     Route: 065
     Dates: start: 201102, end: 201204

REACTIONS (2)
  - Gastrointestinal haemorrhage [Unknown]
  - Injury [Unknown]

NARRATIVE: CASE EVENT DATE: 201204
